FAERS Safety Report 6077552-1 (Version None)
Quarter: 2009Q1

REPORT INFORMATION
  Report Type: 
  Country: None (occurrence: None)
  Receive Date: 20090211
  Receipt Date: 20090126
  Transmission Date: 20090719
  Serious: Yes (Hospitalization)
  Sender: FDA-Public Use
  Company Number: 805#1#2008-00015

PATIENT
  Age: 74 Year
  Sex: Male

DRUGS (3)
  1. ALPROSTADIL [Suspect]
     Indication: ARTERIOSCLEROSIS OBLITERANS
     Dosage: INTRAVENOUS (NOT OTHERWISE SPECIFIED)
     Route: 042
  2. DORNER [Concomitant]
  3. LOXONIN [Concomitant]

REACTIONS (1)
  - INTERSTITIAL LUNG DISEASE [None]
